FAERS Safety Report 25087989 (Version 2)
Quarter: 2025Q3

REPORT INFORMATION
  Report Type: Spontaneous
  Country: CA (occurrence: CA)
  Receive Date: 20250318
  Receipt Date: 20250818
  Transmission Date: 20251021
  Serious: Yes (Death)
  Sender: CELLTRION
  Company Number: CA-CELLTRION INC.-2025CA007826

PATIENT

DRUGS (1)
  1. STEQEYMA [Suspect]
     Active Substance: USTEKINUMAB-STBA
     Indication: Crohn^s disease
     Route: 058
     Dates: start: 20250128

REACTIONS (1)
  - Death [Fatal]
